FAERS Safety Report 8860021 (Version 2)
Quarter: 2013Q2

REPORT INFORMATION
  Report Type: Spontaneous
  Country: GB (occurrence: GB)
  Receive Date: 20121025
  Receipt Date: 20130521
  Transmission Date: 20140414
  Serious: Yes (Other)
  Sender: FDA-Public Use
  Company Number: GB-009507513-1210GBR007546

PATIENT
  Sex: Male

DRUGS (5)
  1. MIRTAZAPINE [Suspect]
     Indication: PANIC ATTACK
     Dosage: 15 MG, UNK
  2. MIRTAZAPINE [Suspect]
     Dosage: 30 MG, UNK
  3. MIRTAZAPINE [Suspect]
     Dosage: 45 MG, UNK
  4. DIAZEPAM [Concomitant]
     Indication: SLEEP DISORDER
     Dosage: UNK
  5. DIAZEPAM [Concomitant]
     Indication: PANIC ATTACK

REACTIONS (2)
  - Suicidal ideation [Not Recovered/Not Resolved]
  - Drug ineffective [Not Recovered/Not Resolved]
